FAERS Safety Report 8920266 (Version 2)
Quarter: 2013Q1

REPORT INFORMATION
  Report Type: Spontaneous
  Country: US (occurrence: US)
  Receive Date: 20121122
  Receipt Date: 20130111
  Transmission Date: 20140127
  Serious: No
  Sender: FDA-Public Use
  Company Number: US-009507513-1211USA003935

PATIENT
  Age: 23 Year
  Sex: Female
  Weight: 112.93 kg

DRUGS (2)
  1. IMPLANON [Suspect]
     Indication: CONTRACEPTION
     Dosage: 1 DF, Q 3 YEARS
     Route: 058
     Dates: start: 20121023, end: 20121023
  2. IMPLANON [Suspect]
     Dosage: 1 DF,
     Route: 058
     Dates: start: 20121023

REACTIONS (2)
  - Device breakage [Unknown]
  - Product quality issue [Unknown]
